FAERS Safety Report 9782252 (Version 1)
Quarter: 2013Q4

REPORT INFORMATION
  Report Type: Spontaneous
  Country: US (occurrence: US)
  Receive Date: 20131226
  Receipt Date: 20131226
  Transmission Date: 20140711
  Serious: Yes (Hospitalization)
  Sender: FDA-Public Use
  Company Number: US-JNJFOC-20131212224

PATIENT
  Age: 67 Year
  Sex: Female
  Weight: 51.26 kg

DRUGS (1)
  1. XARELTO [Suspect]
     Indication: DEEP VEIN THROMBOSIS
     Dosage: 15MG IN THE AM, 15MG AT LUNCH AND 20MG IN THE EVENING
     Route: 048
     Dates: start: 201312, end: 20131213

REACTIONS (5)
  - Creatinine renal clearance decreased [Unknown]
  - Blood urine present [Recovered/Resolved]
  - Pain [Recovered/Resolved]
  - Incorrect dose administered [Recovered/Resolved]
  - Inappropriate schedule of drug administration [Recovered/Resolved]
